FAERS Safety Report 4731985-1 (Version None)
Quarter: 2005Q3

REPORT INFORMATION
  Report Type: 
  Country: None (occurrence: None)
  Receive Date: 20050722
  Receipt Date: 20040728
  Transmission Date: 20060218
  Serious: Yes (Other)
  Sender: FDA-Public Use
  Company Number: 04-000496

PATIENT
  Age: 58 Year
  Sex: Female

DRUGS (3)
  1. FEMHRT [Suspect]
     Indication: HORMONE REPLACEMENT THERAPY
     Dosage: 5/1000UG, ORAL
     Route: 048
     Dates: start: 19980101, end: 20020601
  2. PREMARIN [Suspect]
     Indication: HORMONE REPLACEMENT THERAPY
     Dates: start: 19900101, end: 19930101
  3. PREMPHASE 14/14 [Suspect]
     Indication: HORMONE REPLACEMENT THERAPY
     Dates: start: 19930101, end: 19980101

REACTIONS (1)
  - BREAST CANCER [None]
